FAERS Safety Report 7007714-8 (Version None)
Quarter: 2010Q3

REPORT INFORMATION
  Report Type: 
  Country: None (occurrence: None)
  Receive Date: 20100920
  Receipt Date: 20100907
  Transmission Date: 20110219
  Serious: Yes (Other)
  Sender: FDA-Public Use
  Company Number: 1000016228

PATIENT
  Age: 90 Year
  Sex: Male

DRUGS (1)
  1. ESCITALOPRAM [Suspect]
     Indication: SUICIDAL IDEATION
     Dosage: 5 MG (5 MG, 1 IN 1 D),ORAL
     Route: 048
     Dates: start: 20100801, end: 20100801

REACTIONS (4)
  - ALTERED STATE OF CONSCIOUSNESS [None]
  - DISTURBANCE IN ATTENTION [None]
  - FATIGUE [None]
  - OFF LABEL USE [None]
